FAERS Safety Report 6767907-1 (Version None)
Quarter: 2010Q2

REPORT INFORMATION
  Report Type: 
  Country: None (occurrence: None)
  Receive Date: 20100610
  Receipt Date: 20100601
  Transmission Date: 20101027
  Serious: Yes (Hospitalization)
  Sender: FDA-Public Use
  Company Number: PD-134

PATIENT
  Age: 31 Year
  Sex: Male

DRUGS (1)
  1. RANITIDINE [Suspect]
     Indication: DUODENAL ULCER
     Dosage: ORAL
     Route: 048

REACTIONS (5)
  - ABDOMINAL PAIN [None]
  - ANGIOEDEMA [None]
  - BRONCHIAL OBSTRUCTION [None]
  - LOSS OF CONSCIOUSNESS [None]
  - URTICARIA [None]
